FAERS Safety Report 24591121 (Version 3)
Quarter: 2025Q4

REPORT INFORMATION
  Report Type: Spontaneous
  Country: KR (occurrence: KR)
  Receive Date: 20241107
  Receipt Date: 20251009
  Transmission Date: 20260118
  Serious: Yes (Death, Life-Threatening)
  Sender: STRIDES
  Company Number: KR-STRIDES ARCOLAB LIMITED-2024SP014343

PATIENT
  Age: 60 Year
  Sex: Male

DRUGS (16)
  1. PREDNISOLONE [Suspect]
     Active Substance: PREDNISOLONE
     Indication: Radiation pneumonitis
     Dosage: STARTING AT 20 MG FOR 2 WEEKS, FOLLOWED BY 10 MG FOR AN ADDITIONAL 3 WEEKS
     Route: 065
  2. PREDNISOLONE [Suspect]
     Active Substance: PREDNISOLONE
     Dosage: STARTING AT 20 MG FOR 2 WEEKS, FOLLOWED BY 10 MG FOR AN ADDITIONAL 3 WEEKS
     Route: 065
  3. CISPLATIN [Suspect]
     Active Substance: CISPLATIN
     Indication: Lung adenocarcinoma stage III
     Dosage: UNK
     Route: 065
  4. CISPLATIN [Suspect]
     Active Substance: CISPLATIN
     Indication: Metastases to adrenals
     Dosage: UNK, CYCLICAL (FOUR CYCLES)
     Route: 065
  5. CISPLATIN [Suspect]
     Active Substance: CISPLATIN
     Indication: Metastases to liver
  6. PACLITAXEL [Suspect]
     Active Substance: PACLITAXEL
     Indication: Lung adenocarcinoma stage III
     Dosage: UNK
     Route: 065
  7. CRIZOTINIB [Suspect]
     Active Substance: CRIZOTINIB
     Indication: Lung adenocarcinoma stage III
     Dosage: UNK
     Route: 065
  8. CRIZOTINIB [Suspect]
     Active Substance: CRIZOTINIB
     Indication: Metastases to adrenals
  9. CRIZOTINIB [Suspect]
     Active Substance: CRIZOTINIB
     Indication: Metastases to liver
  10. PEMETREXED [Suspect]
     Active Substance: PEMETREXED
     Indication: Lung adenocarcinoma stage III
     Dosage: UNK, CYCLICAL (FOUR CYCLES)
     Route: 065
  11. PEMETREXED [Suspect]
     Active Substance: PEMETREXED
     Indication: Metastases to adrenals
  12. PEMETREXED [Suspect]
     Active Substance: PEMETREXED
     Indication: Metastases to liver
  13. BECLOMETHASONE [Suspect]
     Active Substance: BECLOMETHASONE
     Indication: Chronic obstructive pulmonary disease
     Dosage: UNK, STEROID INHALER
  14. METHYLPREDNISOLONE [Suspect]
     Active Substance: METHYLPREDNISOLONE
     Indication: Chronic obstructive pulmonary disease
     Dosage: 40 MG FOR 1 WEEK; SYSTEMIC STEROIDS
     Route: 065
  15. METHYLPREDNISOLONE [Suspect]
     Active Substance: METHYLPREDNISOLONE
     Indication: Bronchitis
  16. METHYLPREDNISOLONE [Suspect]
     Active Substance: METHYLPREDNISOLONE
     Indication: Chronic obstructive pulmonary disease

REACTIONS (3)
  - Cytomegalovirus infection [Fatal]
  - Tracheobronchitis viral [Fatal]
  - Haemoptysis [Fatal]
